FAERS Safety Report 5873313-4 (Version None)
Quarter: 2008Q3

REPORT INFORMATION
  Report Type: 
  Country: None (occurrence: None)
  Receive Date: 20080904
  Receipt Date: 20070723
  Transmission Date: 20090109
  Serious: Yes (Hospitalization)
  Sender: FDA-Public Use
  Company Number: 2007-00674FE

PATIENT
  Age: 28 Year
  Sex: Female

DRUGS (3)
  1. GONADORELIN INJ [Suspect]
     Indication: OVULATION INDUCTION
     Dosage: 15 MG/20 MG IV/SC
     Dates: start: 20070703, end: 20070703
  2. GONADORELIN INJ [Suspect]
     Indication: OVULATION INDUCTION
     Dosage: 15 MG/20 MG IV/SC
     Dates: start: 20070710
  3. HEPARIN [Suspect]
     Dosage: 0.2 ML IV
     Route: 042
     Dates: start: 20070703, end: 20070703

REACTIONS (4)
  - MALAISE [None]
  - PALLOR [None]
  - PRURITUS GENERALISED [None]
  - URTICARIA [None]
